FAERS Safety Report 6095974-X (Version None)
Quarter: 2009Q1

REPORT INFORMATION
  Report Type: 
  Country: None (occurrence: None)
  Receive Date: 20090227
  Receipt Date: 20080729
  Transmission Date: 20090719
  Serious: No
  Sender: FDA-Public Use
  Company Number: A0739900A

PATIENT
  Sex: Male

DRUGS (4)
  1. LAMICTAL [Suspect]
     Indication: BIPOLAR DISORDER
     Dosage: 100MG PER DAY
     Route: 048
     Dates: start: 20070101, end: 20080701
  2. LITHIUM [Concomitant]
  3. SEROQUEL [Concomitant]
  4. KLONOPIN [Concomitant]

REACTIONS (1)
  - DEPRESSION [None]
